FAERS Safety Report 7249844-1 (Version None)
Quarter: 2011Q1

REPORT INFORMATION
  Report Type: 
  Country: None (occurrence: None)
  Receive Date: 20110128
  Receipt Date: 20100602
  Transmission Date: 20110831
  Serious: No
  Sender: FDA-Public Use
  Company Number: A0864427A

PATIENT
  Age: 66 Year
  Sex: Female

DRUGS (1)
  1. ZYBAN [Suspect]

REACTIONS (1)
  - DRUG INEFFECTIVE [None]
